FAERS Safety Report 17863642 (Version 3)
Quarter: 2020Q3

REPORT INFORMATION
  Report Type: Spontaneous
  Country: DE (occurrence: DE)
  Receive Date: 20200604
  Receipt Date: 20200717
  Transmission Date: 20201103
  Serious: Yes (Other)
  Sender: FDA-Public Use
  Company Number: DE-BEH-2020118197

PATIENT
  Age: 54 Year
  Sex: Male
  Weight: 87 kg

DRUGS (1)
  1. HIZENTRA [Suspect]
     Active Substance: HUMAN IMMUNOGLOBULIN G
     Indication: CHRONIC INFLAMMATORY DEMYELINATING POLYRADICULONEUROPATHY
     Dosage: 50 MILLILITER, BIW (EVERY 3 DAYS)
     Route: 058
     Dates: start: 20180604

REACTIONS (5)
  - Dysphonia [Unknown]
  - Dyspnoea [Unknown]
  - Painful respiration [Unknown]
  - Respiration abnormal [Unknown]
  - Dysphagia [Unknown]

NARRATIVE: CASE EVENT DATE: 20180604
